FAERS Safety Report 8143943-8 (Version None)
Quarter: 2012Q1

REPORT INFORMATION
  Report Type: 
  Country: None (occurrence: None)
  Receive Date: 20120217
  Receipt Date: 20120214
  Transmission Date: 20120608
  Serious: Yes (Life-Threatening, Hospitalization, Other)
  Sender: FDA-Public Use
  Company Number: IL-SANOFI-AVENTIS-2011SA078958

PATIENT
  Sex: Male

DRUGS (5)
  1. PLAVIX [Suspect]
     Route: 065
     Dates: start: 20110327
  2. LANTUS [Concomitant]
  3. PLAVIX [Suspect]
     Route: 065
     Dates: start: 20101222
  4. APIDRA [Concomitant]
  5. PLAVIX [Suspect]
     Route: 065
     Dates: start: 20110704

REACTIONS (12)
  - PNEUMONIA [None]
  - RENAL FAILURE [None]
  - PYREXIA [None]
  - MELAENA [None]
  - ACUTE RESPIRATORY FAILURE [None]
  - HAEMOGLOBIN DECREASED [None]
  - HAEMOPTYSIS [None]
  - BLOOD UREA INCREASED [None]
  - GASTROINTESTINAL HAEMORRHAGE [None]
  - CARDIAC FAILURE CONGESTIVE [None]
  - DYSPNOEA [None]
  - SEPSIS [None]
